FAERS Safety Report 5088096-8 (Version None)
Quarter: 2006Q3

REPORT INFORMATION
  Report Type: 
  Country: None (occurrence: None)
  Receive Date: 20060821
  Receipt Date: 20060808
  Transmission Date: 20061208
  Serious: Yes (Hospitalization, Other)
  Sender: FDA-Public Use
  Company Number: 2006096677

PATIENT
  Age: 30 Year
  Sex: Female
  Weight: 72.5755 kg

DRUGS (12)
  1. XANAX [Suspect]
     Indication: PSYCHOTIC DISORDER
     Dosage: 0.75 MG (0.25 MG, 3 IN 1 D), ORAL
     Route: 048
     Dates: start: 20050201
  2. RELPAX [Suspect]
     Indication: DRUG USE FOR UNKNOWN INDICATION
     Dates: start: 20050701
  3. XYREM [Suspect]
     Indication: RAPID EYE MOVEMENTS SLEEP ABNORMAL
     Dosage: 8 GRAM (4 GRAM, 2 IN 1 D), ORAL
     Route: 048
     Dates: start: 20050101, end: 20050101
  4. XYREM [Suspect]
     Indication: SLEEP DISORDER
     Dosage: 8 GRAM (4 GRAM, 2 IN 1 D), ORAL
     Route: 048
     Dates: start: 20050101, end: 20050101
  5. ALLEGRA [Suspect]
     Indication: DRUG USE FOR UNKNOWN INDICATION
  6. COUGH AND COLD PREPARATIONS (COUGH AND COLD PREPARATIONS) [Suspect]
     Indication: DRUG USE FOR UNKNOWN INDICATION
  7. PAXIL [Suspect]
     Indication: DRUG USE FOR UNKNOWN INDICATION
     Dosage: 20 MG (20 MG, 1 IN 1 D)
     Dates: start: 20050601
  8. ZYPREXA [Concomitant]
  9. ASPIRIN [Concomitant]
  10. ESTROGENIC SUBSTANCE [Concomitant]
  11. AMBIEN [Concomitant]
  12. ROBAXIN [Concomitant]

REACTIONS (32)
  - ABNORMAL BEHAVIOUR [None]
  - AFFECTIVE DISORDER [None]
  - BLOOD ALKALINE PHOSPHATASE INCREASED [None]
  - BLOOD CALCIUM DECREASED [None]
  - BRADYPHRENIA [None]
  - CONFUSIONAL STATE [None]
  - DELUSION [None]
  - DEPRESSION [None]
  - DRUG INTERACTION [None]
  - DYSPHORIA [None]
  - FEELINGS OF WORTHLESSNESS [None]
  - FLAT AFFECT [None]
  - HALLUCINATIONS, MIXED [None]
  - HEART RATE INCREASED [None]
  - HOMICIDAL IDEATION [None]
  - ILLUSION [None]
  - MORBID THOUGHTS [None]
  - MULTIPLE DRUG OVERDOSE INTENTIONAL [None]
  - NERVOUSNESS [None]
  - NIGHTMARE [None]
  - OBSESSIVE THOUGHTS [None]
  - PANIC DISORDER [None]
  - PARANOIA [None]
  - PSYCHOTIC DISORDER [None]
  - RESPIRATORY RATE INCREASED [None]
  - SLEEP DISORDER [None]
  - SOMATIC DELUSION [None]
  - STRESS [None]
  - SUICIDE ATTEMPT [None]
  - TACHYCARDIA [None]
  - TANGENTIALITY [None]
  - WHITE BLOOD CELL COUNT INCREASED [None]
